FAERS Safety Report 8072781-X (Version None)
Quarter: 2011Q4

REPORT INFORMATION
  Report Type: 
  Country: None (occurrence: None)
  Receive Date: 20111221
  Receipt Date: 20101029
  Transmission Date: 20120403
  Serious: Yes (Hospitalization, Disabling)
  Sender: FDA-Public Use
  Company Number: PHHY2010US52401

PATIENT
  Age: 45 Year
  Sex: Female
  Weight: 55.7 kg

DRUGS (7)
  1. VITAMIN D [Concomitant]
  2. BENADRYL ^ACHE^ (AMMONIUM CHLORIDE, DIPHENHYDRAMINE HYDROCHLORIDE, MEN [Concomitant]
  3. OXYCONTIN [Concomitant]
  4. FOLIC ACID [Concomitant]
  5. ULTRAM [Concomitant]
  6. EXJADE [Suspect]
     Indication: IRON OVERLOAD
     Dosage: 500 MG, TID, ORAL
     Route: 048
     Dates: start: 20060502, end: 20100721
  7. EXJADE [Suspect]
     Indication: SICKLE CELL ANAEMIA
     Dosage: 500 MG, TID, ORAL
     Route: 048
     Dates: start: 20060502, end: 20100721

REACTIONS (4)
  - DEAFNESS NEUROSENSORY [None]
  - TINNITUS [None]
  - ASPARTATE AMINOTRANSFERASE INCREASED [None]
  - BLOOD CALCIUM DECREASED [None]
